FAERS Safety Report 22250369 (Version 2)
Quarter: 2023Q2

REPORT INFORMATION
  Report Type: Spontaneous
  Country: US (occurrence: US)
  Receive Date: 20230425
  Receipt Date: 20230508
  Transmission Date: 20230721
  Serious: Yes (Hospitalization, Other)
  Sender: FDA-Public Use
  Company Number: US-PFIZER INC-PV202300072278

PATIENT
  Age: 58 Year
  Sex: Female

DRUGS (13)
  1. METHYLPREDNISOLONE SODIUM SUCCINATE [Suspect]
     Active Substance: METHYLPREDNISOLONE SODIUM SUCCINATE
     Indication: Microscopic polyangiitis
     Dosage: DAYS -45 TO -43(DAYS RELATIVE TO AVACOPAN INITIATION)
     Route: 042
  2. METHYLPREDNISOLONE SODIUM SUCCINATE [Suspect]
     Active Substance: METHYLPREDNISOLONE SODIUM SUCCINATE
     Dosage: DAY -30 TO -28(DAYS RELATIVE TO AVACOPAN INITIATION)
     Route: 042
  3. METHYLPREDNISOLONE [Suspect]
     Active Substance: METHYLPREDNISOLONE
     Indication: Microscopic polyangiitis
     Dosage: 50 MG, DAILY
     Route: 048
  4. METHYLPREDNISOLONE [Suspect]
     Active Substance: METHYLPREDNISOLONE
     Dosage: ATTEMPTS TO TAPER THE METHYLPREDNISOLONE BELOW
     Route: 048
  5. METHYLPREDNISOLONE [Suspect]
     Active Substance: METHYLPREDNISOLONE
     Dosage: RESUMED METHYLPREDNISOLONE 50 MG
     Route: 048
  6. METHYLPREDNISOLONE [Suspect]
     Active Substance: METHYLPREDNISOLONE
     Dosage: GRADUAL TAPER STARTING AT 50 MG (DAY 0)(DAYS RELATIVE TO AVACOPAN INITIATION)
     Route: 048
  7. METHYLPREDNISOLONE [Suspect]
     Active Substance: METHYLPREDNISOLONE
     Dosage: DAY 23(DAYS RELATIVE TO AVACOPAN INITIATION)
     Route: 048
  8. METHYLPREDNISOLONE [Suspect]
     Active Substance: METHYLPREDNISOLONE
     Dosage: TAPERED OFF METHYLPREDNISOLONE COMPLETELY (DAY 284)(DAYS RELATIVE TO AVACOPAN INITIATION)
  9. RITUXIMAB [Concomitant]
     Active Substance: RITUXIMAB
     Indication: Microscopic polyangiitis
     Dosage: DAY - 40 (DAYS RELATIVE TO AVACOPAN INITIATION)
     Route: 042
  10. RITUXIMAB [Concomitant]
     Active Substance: RITUXIMAB
     Dosage: DAY - 25(DAYS RELATIVE TO AVACOPAN INITIATION)
     Route: 042
  11. FUROSEMIDE [Concomitant]
     Active Substance: FUROSEMIDE
     Indication: Polyuria
     Dosage: UNK
  12. WARFARIN [Concomitant]
     Active Substance: WARFARIN
     Indication: Deep vein thrombosis
     Dosage: UNK
  13. ATOVAQUONE [Concomitant]
     Active Substance: ATOVAQUONE
     Indication: Antifungal prophylaxis
     Dosage: UNK

REACTIONS (7)
  - Acute kidney injury [Recovered/Resolved]
  - Condition aggravated [Recovering/Resolving]
  - Type 2 diabetes mellitus [Recovered/Resolved]
  - Arthralgia [Recovering/Resolving]
  - Hypertension [Recovered/Resolved]
  - Hypervolaemia [Recovering/Resolving]
  - Off label use [Unknown]
